FAERS Safety Report 6083603-0 (Version None)
Quarter: 2009Q1

REPORT INFORMATION
  Report Type: 
  Country: None (occurrence: None)
  Receive Date: 20090219
  Receipt Date: 20090202
  Transmission Date: 20090719
  Serious: Yes (Life-Threatening, Hospitalization)
  Sender: FDA-Public Use
  Company Number: ES-ABBOTT-08P-144-0476437-00

PATIENT
  Age: 64 Year
  Sex: Female

DRUGS (7)
  1. AKINETON [Suspect]
     Indication: DRUG USE FOR UNKNOWN INDICATION
     Route: 048
     Dates: start: 20060101, end: 20080315
  2. HALOPERIDOL [Suspect]
     Indication: CONFUSIONAL STATE
     Route: 042
     Dates: start: 20080310, end: 20080315
  3. ANTABUSE [Suspect]
     Indication: ALCOHOL DETOXIFICATION
     Route: 048
     Dates: start: 20070901, end: 20080315
  4. ETUMINA [Suspect]
     Indication: BIPOLAR DISORDER
     Route: 048
     Dates: start: 19940101, end: 20080315
  5. ORFIDAL [Suspect]
     Indication: DRUG USE FOR UNKNOWN INDICATION
     Route: 048
     Dates: start: 19940101, end: 20080315
  6. LITHIUM CARBONATE [Suspect]
     Indication: DRUG USE FOR UNKNOWN INDICATION
     Route: 048
     Dates: start: 19880101, end: 20080315
  7. VENLAFAXINE HCL [Suspect]
     Indication: BIPOLAR DISORDER
     Route: 048
     Dates: start: 20000101, end: 20080315

REACTIONS (6)
  - BLOOD CREATINE PHOSPHOKINASE INCREASED [None]
  - CONFUSIONAL STATE [None]
  - HYPERNATRAEMIA [None]
  - METABOLIC ACIDOSIS [None]
  - NEUROLEPTIC MALIGNANT SYNDROME [None]
  - PYREXIA [None]
